FAERS Safety Report 9438197 (Version 1)
Quarter: 2013Q3

REPORT INFORMATION
  Report Type: Spontaneous
  Country: US (occurrence: US)
  Receive Date: 20130802
  Receipt Date: 20130802
  Transmission Date: 20140515
  Serious: Yes (Other)
  Sender: FDA-Public Use
  Company Number: US-BRISTOL-MYERS SQUIBB COMPANY-17373663

PATIENT
  Age: 91 Year
  Sex: Male

DRUGS (3)
  1. COUMADIN [Suspect]
     Indication: ATRIAL FIBRILLATION
     Dosage: 2 MG AND 4 MG ON VARIOUS DAYS
  2. HYDROCHLOROTHIAZIDE [Concomitant]
  3. METOPROLOL [Concomitant]

REACTIONS (1)
  - International normalised ratio increased [Recovering/Resolving]
